FAERS Safety Report 9663070 (Version 2)
Quarter: 2013Q4

REPORT INFORMATION
  Report Type: Report from Study
  Country: CA (occurrence: CA)
  Receive Date: 20131031
  Receipt Date: 20131122
  Transmission Date: 20140711
  Serious: Yes (Hospitalization, Other)
  Sender: FDA-Public Use
  Company Number: CA-ABBVIE-13P-028-1162762-00

PATIENT
  Age: 91 Year
  Sex: Male
  Weight: 62.65 kg

DRUGS (1)
  1. LUPRON DEPOT [Suspect]
     Indication: PROSTATE CANCER
     Route: 030

REACTIONS (5)
  - Metastases to pelvis [Recovered/Resolved]
  - Fall [Unknown]
  - Metastatic pain [Unknown]
  - Anaemia [Unknown]
  - Pain in extremity [Unknown]
